FAERS Safety Report 24689199 (Version 1)
Quarter: 2024Q4

REPORT INFORMATION
  Report Type: Spontaneous
  Country: US (occurrence: US)
  Receive Date: 20241203
  Receipt Date: 20241203
  Transmission Date: 20250115
  Serious: Yes (Other)
  Sender: PURACAP PHARMACEUTICAL LLC
  Company Number: US-PURACAP-US-2024EPCLIT01492

PATIENT
  Age: 73 Year
  Sex: Female

DRUGS (5)
  1. DOXYCYCLINE HYCLATE [Suspect]
     Active Substance: DOXYCYCLINE HYCLATE
     Indication: Pemphigoid
     Route: 065
  2. DAPSONE [Concomitant]
     Active Substance: DAPSONE
     Indication: Pemphigoid
     Route: 065
  3. NIACINAMIDE [Concomitant]
     Active Substance: NIACINAMIDE
     Indication: Pemphigoid
     Route: 065
  4. PREDNISONE [Concomitant]
     Active Substance: PREDNISONE
     Indication: Pemphigoid
     Route: 065
  5. DUPILUMAB [Concomitant]
     Active Substance: DUPILUMAB
     Indication: Pemphigoid
     Route: 065

REACTIONS (3)
  - Gastric ulcer haemorrhage [Recovering/Resolving]
  - Gastrointestinal injury [Recovering/Resolving]
  - Product use in unapproved indication [Unknown]
